FAERS Safety Report 23912526 (Version 2)
Quarter: 2025Q3

REPORT INFORMATION
  Report Type: Report from Study
  Country: EU (occurrence: EU)
  Receive Date: 20240528
  Receipt Date: 20250901
  Transmission Date: 20251021
  Serious: Yes (Life-Threatening, Hospitalization)
  Sender: TAKEDA
  Company Number: EU-JNJFOC-20240575945

PATIENT
  Age: 55 Year
  Sex: Male

DRUGS (4)
  1. BORTEZOMIB [Suspect]
     Active Substance: BORTEZOMIB
     Indication: Plasma cell myeloma
  2. DARZALEX [Suspect]
     Active Substance: DARATUMUMAB
     Indication: Plasma cell myeloma
  3. DARZALEX [Suspect]
     Active Substance: DARATUMUMAB
  4. DARZALEX [Suspect]
     Active Substance: DARATUMUMAB

REACTIONS (1)
  - Influenza [Recovering/Resolving]

NARRATIVE: CASE EVENT DATE: 20240105
